FAERS Safety Report 5287730-7 (Version None)
Quarter: 2007Q2

REPORT INFORMATION
  Report Type: 
  Country: None (occurrence: None)
  Receive Date: 20070405
  Receipt Date: 20070328
  Transmission Date: 20071010
  Serious: Yes (Other)
  Sender: FDA-Public Use
  Company Number: HQWYE932130JAN07

PATIENT
  Sex: Female

DRUGS (6)
  1. EFFEXOR XR [Suspect]
     Indication: POSTPARTUM DEPRESSION
     Route: 048
     Dates: start: 20000101, end: 20060101
  2. EFFEXOR XR [Suspect]
     Dosage: ATTEMPT TO TAPER OFF EFFEXOR XR; UNSUCCESSFUL AND CONTINUED ON THERAPY AT UNKNOWN DOSE
     Route: 048
     Dates: start: 20060101
  3. RETINOL [Concomitant]
  4. IRON [Concomitant]
     Indication: MEDICAL DIET
     Dosage: UNKNOWN
     Route: 048
  5. NEXIUM [Concomitant]
     Dosage: 40 MG 2X DAY ^ONLY WHEN NEEDED^
     Route: 048
  6. RANITIDINE [Concomitant]
     Dosage: 300 MG DAILY ^ONLY WHEN NEEDED^
     Route: 048

REACTIONS (5)
  - BLOOD PRESSURE DECREASED [None]
  - DEPENDENCE [None]
  - DRUG EXPOSURE DURING PREGNANCY [None]
  - DRUG WITHDRAWAL SYNDROME [None]
  - PLACENTAL DISORDER [None]
